FAERS Safety Report 8599500-2 (Version None)
Quarter: 2012Q3

REPORT INFORMATION
  Report Type: 
  Country: None (occurrence: None)
  Receive Date: 20120816
  Receipt Date: 20120607
  Transmission Date: 20120928
  Serious: No
  Sender: FDA-Public Use
  Company Number: US-ALLERGAN-1208043US

PATIENT
  Age: 73 Year
  Sex: Female

DRUGS (6)
  1. ESTROGEN [Concomitant]
     Indication: HORMONE REPLACEMENT THERAPY
     Dosage: 1 PO QD
     Route: 048
     Dates: start: 20020101
  2. ZOCOR [Concomitant]
     Indication: BLOOD CHOLESTEROL INCREASED
     Dosage: 1 PO QD
     Route: 048
     Dates: start: 20020101
  3. NORVASC [Concomitant]
     Indication: HYPERTENSION
     Dosage: 1 PO QD
     Route: 048
     Dates: start: 20070101
  4. CALCIUM [Concomitant]
     Indication: SUPPLEMENTATION THERAPY
     Dosage: 1 PO QD
     Route: 048
  5. LASTACAFT [Suspect]
     Indication: POSTOPERATIVE CARE
     Dosage: 1 GTT OU QD
     Route: 047
     Dates: start: 20120607, end: 20120607
  6. VITAMIN E [Concomitant]
     Indication: SUPPLEMENTATION THERAPY
     Dosage: 1 PO QD
     Route: 048

REACTIONS (2)
  - EYE PAIN [None]
  - OCULAR HYPERAEMIA [None]
